FAERS Safety Report 10183421 (Version 1)
Quarter: 2014Q2

REPORT INFORMATION
  Report Type: Spontaneous
  Country: US (occurrence: None)
  Receive Date: 20140416
  Receipt Date: 20140416
  Transmission Date: 20141212
  Serious: Yes (Other)
  Sender: FDA-Public Use
  Company Number: 163-POMAL-13115421

PATIENT
  Age: 75 Year
  Sex: Female
  Weight: 68.04 kg

DRUGS (5)
  1. POMALYST (POMALIDOMIDE) (CAPSULES) [Suspect]
     Indication: PLASMA CELL MYELOMA
     Dosage: 4 MG, 21 IN 21 D, PO
     Route: 048
     Dates: start: 201305
  2. STEROIDS (CORTICOSTEROIDS) (UNKNOWN) [Concomitant]
  3. VITAMINS (VITAMINS) (UNKNOWN) [Concomitant]
  4. ACYCLOVIR (ACICLOVIR) (UNKNOWN) [Concomitant]
  5. METOPROLOL (METOPROLOL) (25 MILLIGRAM, UNKNOWN) [Concomitant]

REACTIONS (5)
  - Red blood cell count decreased [None]
  - Haemoglobin decreased [None]
  - Pain in extremity [None]
  - Musculoskeletal chest pain [None]
  - Asthenia [None]
